FAERS Safety Report 18604806 (Version 1)
Quarter: 2020Q4

REPORT INFORMATION
  Report Type: Spontaneous
  Country: US (occurrence: US)
  Receive Date: 20201211
  Receipt Date: 20201211
  Transmission Date: 20210114
  Serious: Yes (Hospitalization)
  Sender: FDA-Public Use
  Company Number: US-LEO PHARMA-333042

PATIENT
  Age: 57 Year
  Sex: Male

DRUGS (1)
  1. ENSTILAR [Suspect]
     Active Substance: BETAMETHASONE DIPROPIONATE\CALCIPOTRIENE HYDRATE
     Indication: PUSTULAR PSORIASIS
     Dosage: USED AT NIGHT SPORADICALLY
     Route: 061

REACTIONS (2)
  - Contraindicated product administered [Unknown]
  - Lower limb fracture [Unknown]
